FAERS Safety Report 22352290 (Version 2)
Quarter: 2023Q4

REPORT INFORMATION
  Report Type: Report from Study
  Country: US (occurrence: US)
  Receive Date: 20230522
  Receipt Date: 20231025
  Transmission Date: 20240110
  Serious: No
  Sender: FDA-Public Use
  Company Number: US-IDORSIA-004788-2023-US

PATIENT
  Sex: Female

DRUGS (4)
  1. QUVIVIQ [Suspect]
     Active Substance: DARIDOREXANT
     Indication: Insomnia
     Dosage: 50 MG, QD
     Route: 048
     Dates: start: 20230401
  2. XANAX [Concomitant]
     Active Substance: ALPRAZOLAM
     Dosage: 0.5 TO 1.0 MG
     Route: 048
  3. MELATONIN [Concomitant]
     Active Substance: MELATONIN
     Dosage: 15 MG
  4. BUPROPION [Concomitant]
     Active Substance: BUPROPION
     Dosage: 300 MG

REACTIONS (2)
  - Drug ineffective [Recovering/Resolving]
  - Restlessness [Unknown]
